FAERS Safety Report 7369888-9 (Version None)
Quarter: 2011Q1

REPORT INFORMATION
  Report Type: 
  Country: None (occurrence: None)
  Receive Date: 20110323
  Receipt Date: 20110314
  Transmission Date: 20110831
  Serious: Yes (Hospitalization, Other)
  Sender: FDA-Public Use
  Company Number: US-ASTRAZENECA-2011SE08826

PATIENT
  Age: 728 Month
  Sex: Male

DRUGS (1)
  1. CRESTOR [Suspect]
     Route: 048

REACTIONS (4)
  - PROSTATE CANCER [None]
  - PROSTATIC OPERATION [None]
  - METASTASES TO RECTUM [None]
  - SKIN CANCER [None]
